FAERS Safety Report 19218542 (Version 1)
Quarter: 2021Q2

REPORT INFORMATION
  Report Type: Spontaneous
  Country: ES (occurrence: ES)
  Receive Date: 20210505
  Receipt Date: 20210505
  Transmission Date: 20210717
  Serious: Yes (Hospitalization, Other)
  Sender: FDA-Public Use
  Company Number: ES-MACLEODS PHARMACEUTICALS US LTD-MAC2021031057

PATIENT

DRUGS (3)
  1. ETHINYLESTRADIOL [Concomitant]
     Active Substance: ETHINYL ESTRADIOL
     Indication: HYPERTRICHOSIS
     Dosage: 35 MICROGRAM, QD
     Route: 065
  2. CYPROTERONE ACETATE [Concomitant]
     Active Substance: CYPROTERONE ACETATE
     Indication: HYPERTRICHOSIS
     Dosage: 2 MILLIGRAM, QD
     Route: 065
  3. TRIAMCINOLONE [Suspect]
     Active Substance: TRIAMCINOLONE
     Indication: OTITIS MEDIA
     Dosage: 40 MILLIGRAM, QD
     Route: 065

REACTIONS (2)
  - Osteonecrosis [Recovering/Resolving]
  - Prothrombin level increased [Unknown]
